FAERS Safety Report 14953333 (Version 1)
Quarter: 2018Q2

REPORT INFORMATION
  Report Type: Spontaneous
  Country: BR (occurrence: BR)
  Receive Date: 20180530
  Receipt Date: 20180530
  Transmission Date: 20180711
  Serious: Yes (Other)
  Sender: FDA-Public Use
  Company Number: BR-B.I. PHARMACEUTICALS,INC./RIDGEFIELD-2018-BI-028416

PATIENT
  Sex: Female

DRUGS (1)
  1. PRADAXA [Suspect]
     Active Substance: DABIGATRAN ETEXILATE MESYLATE
     Indication: PRODUCT USED FOR UNKNOWN INDICATION
     Route: 065

REACTIONS (3)
  - Fall [Unknown]
  - Head injury [Unknown]
  - Contusion [Unknown]
